FAERS Safety Report 6629330-X (Version None)
Quarter: 2010Q1

REPORT INFORMATION
  Report Type: 
  Country: None (occurrence: None)
  Receive Date: 20100311
  Receipt Date: 20090928
  Transmission Date: 20100710
  Serious: No
  Sender: FDA-Public Use
  Company Number: US-BIOGENIDEC-2009BI024454

PATIENT
  Age: 54 Year
  Sex: Female

DRUGS (3)
  1. AVONEX [Suspect]
     Indication: MULTIPLE SCLEROSIS
     Route: 030
     Dates: start: 20090708, end: 20090714
  2. AVONEX [Suspect]
     Route: 030
     Dates: start: 20090715, end: 20090728
  3. AVONEX [Suspect]
     Route: 030
     Dates: start: 20090729

REACTIONS (3)
  - ARTHROPOD STING [None]
  - OEDEMA PERIPHERAL [None]
  - RALES [None]
